FAERS Safety Report 4772045-3 (Version None)
Quarter: 2005Q3

REPORT INFORMATION
  Report Type: 
  Country: None (occurrence: None)
  Receive Date: 20050916
  Receipt Date: 20050903
  Transmission Date: 20060218
  Serious: Yes (Hospitalization)
  Sender: FDA-Public Use
  Company Number: 2005123865

PATIENT
  Age: 64 Year
  Sex: Female
  Weight: 63.5036 kg

DRUGS (9)
  1. LISTERINE (MENTHOL, METHYL SALICYLATE, EUCALYPTOL, THYMOL) [Suspect]
     Indication: ALCOHOL POISONING
     Dosage: AT LEAST 2-3 BOTTLES EVERY DAY, ORAL
     Route: 048
  2. ATENOLOL [Concomitant]
  3. POTASSIUM (POTASSIUM) [Concomitant]
  4. FUROSEMIDE [Concomitant]
  5. AMLODIPINE BESYLATE [Concomitant]
  6. OLANZAPINE [Concomitant]
  7. DRUG (DRUG,) [Concomitant]
  8. SERTRALINE HCL [Concomitant]
  9. IBUPROFEN [Concomitant]

REACTIONS (5)
  - ALCOHOL POISONING [None]
  - INTENTIONAL MISUSE [None]
  - OVERDOSE [None]
  - THINKING ABNORMAL [None]
  - TREMOR [None]
